FAERS Safety Report 22211842 (Version 4)
Quarter: 2023Q2

REPORT INFORMATION
  Report Type: Spontaneous
  Country: US (occurrence: US)
  Receive Date: 20230414
  Receipt Date: 20230522
  Transmission Date: 20230721
  Serious: Yes (Life-Threatening, Hospitalization, Other)
  Sender: FDA-Public Use
  Company Number: US-002147023-NVSC2023US083247

PATIENT
  Age: 56 Year
  Sex: Female
  Weight: 68.49 kg

DRUGS (6)
  1. CEFTRIAXONE [Suspect]
     Active Substance: CEFTRIAXONE
     Indication: Pharyngitis
     Dosage: 1 G (POWDER THAT RECONSTITUTES WITH LIDOCAINE) (FOR INJECTION, WITH XYLOCAINE, AND WITH DEXAMETHASON
     Route: 065
  2. CEFTRIAXONE [Suspect]
     Active Substance: CEFTRIAXONE
     Indication: Respiratory symptom
     Dosage: 1 G (POWDER THAT RECONSTITUTES WITH LIDOCAINE) (FOR INJECTION, WITH XYLOCAINE, AND WITH DEXAMETHASON
     Route: 065
  3. CEFTRIAXONE [Suspect]
     Active Substance: CEFTRIAXONE
     Indication: Otitis media
     Dosage: 1 DOSAGE FORM
     Route: 030
     Dates: start: 20230324, end: 20230324
  4. DEXAMETHASONE [Suspect]
     Active Substance: DEXAMETHASONE
     Indication: Wheezing
     Dosage: 1 DOSAGE FORM (GIVEN ALONG WITH THE CEFTRIAXONE AND XYLOCAINE)
     Route: 030
     Dates: start: 20230324, end: 20230324
  5. XYLOCAINE [Suspect]
     Active Substance: LIDOCAINE HYDROCHLORIDE
     Indication: Otitis media
     Dosage: 1 DOSAGE FORM
     Route: 030
     Dates: start: 20230324, end: 20230324
  6. NICOTINE [Concomitant]
     Active Substance: NICOTINE
     Indication: Product used for unknown indication
     Dosage: UNK
     Route: 065

REACTIONS (21)
  - Respiratory distress [Recovered/Resolved]
  - Seizure [Recovered/Resolved]
  - Anaphylactic reaction [Unknown]
  - Pyrexia [Unknown]
  - Productive cough [Unknown]
  - Headache [Unknown]
  - Musculoskeletal chest pain [Unknown]
  - Cough [Not Recovered/Not Resolved]
  - Wheezing [Unknown]
  - Ear pain [Unknown]
  - Nasal congestion [Unknown]
  - Malaise [Unknown]
  - Dyspnoea [Unknown]
  - Foaming at mouth [Unknown]
  - Speech disorder [Unknown]
  - Respiratory rate increased [Unknown]
  - Tremor [Unknown]
  - Skin discolouration [Unknown]
  - Swelling [Unknown]
  - Erythema [Unknown]
  - Otitis media [Unknown]

NARRATIVE: CASE EVENT DATE: 20230324
